FAERS Safety Report 5367272-0 (Version None)
Quarter: 2007Q2

REPORT INFORMATION
  Report Type: 
  Country: None (occurrence: None)
  Receive Date: 20070622
  Receipt Date: 20070615
  Transmission Date: 20071010
  Serious: Yes (Hospitalization)
  Sender: FDA-Public Use
  Company Number: US-PURDUE-USA_2007_0027893

PATIENT
  Sex: Male

DRUGS (2)
  1. MS CONTIN [Suspect]
     Indication: PROCEDURAL PAIN
     Dosage: UNK MG, SEE TEXT
  2. OXYMORPHONE HYDROCHLORIDE [Suspect]
     Indication: BONE PAIN
     Dosage: UNK, UNK

REACTIONS (2)
  - ABNORMAL BEHAVIOUR [None]
  - DISORIENTATION [None]
